FAERS Safety Report 15819594 (Version 1)
Quarter: 2019Q1

REPORT INFORMATION
  Report Type: Spontaneous
  Country: CA (occurrence: CA)
  Receive Date: 20190114
  Receipt Date: 20190114
  Transmission Date: 20190417
  Serious: Yes (Life-Threatening)
  Sender: FDA-Public Use
  Company Number: CA-EMD SERONO-9063244

PATIENT
  Age: 42 Year
  Sex: Female
  Weight: 50 kg

DRUGS (4)
  1. FLUOXETINE [Concomitant]
     Active Substance: FLUOXETINE HYDROCHLORIDE
     Indication: PRODUCT USED FOR UNKNOWN INDICATION
  2. VITAMIN D                          /00107901/ [Concomitant]
     Active Substance: ERGOCALCIFEROL
     Indication: PRODUCT USED FOR UNKNOWN INDICATION
  3. VYVANSE [Concomitant]
     Active Substance: LISDEXAMFETAMINE DIMESYLATE
     Indication: PRODUCT USED FOR UNKNOWN INDICATION
  4. REBIF [Suspect]
     Active Substance: INTERFERON BETA-1A
     Indication: MULTIPLE SCLEROSIS
     Route: 058

REACTIONS (10)
  - Blood creatinine increased [Recovering/Resolving]
  - Haemolytic anaemia [Recovering/Resolving]
  - Hypertension [Recovering/Resolving]
  - Acute kidney injury [Recovering/Resolving]
  - Normochromic normocytic anaemia [Recovering/Resolving]
  - Upper respiratory tract infection [Recovering/Resolving]
  - Proteinuria [Recovering/Resolving]
  - Blood lactate dehydrogenase increased [Recovering/Resolving]
  - Haptoglobin decreased [Recovering/Resolving]
  - Red blood cell schistocytes present [Recovering/Resolving]
